FAERS Safety Report 14181820 (Version 1)
Quarter: 2017Q4

REPORT INFORMATION
  Report Type: Spontaneous
  Country: US (occurrence: None)
  Receive Date: 20171113
  Receipt Date: 20171113
  Transmission Date: 20180321
  Serious: No
  Sender: FDA-Public Use
  Company Number: None

PATIENT
  Age: 70 Year
  Sex: Female
  Weight: 61.23 kg

DRUGS (4)
  1. PRESERVISION [Concomitant]
     Active Substance: MINERALS\VITAMINS
  2. YUVAFEM [Suspect]
     Active Substance: ESTRADIOL HEMIHYDRATE
     Indication: VULVOVAGINAL DRYNESS
     Route: 067
     Dates: start: 20170101, end: 20170531
  3. MULTIVITAMIN [Concomitant]
     Active Substance: VITAMINS
  4. VAGIFEM [Concomitant]
     Active Substance: ESTRADIOL

REACTIONS (6)
  - Vulvovaginal burning sensation [None]
  - Injury associated with device [None]
  - Product substitution issue [None]
  - Dyspareunia [None]
  - Packaging design issue [None]
  - Vaginal discharge [None]

NARRATIVE: CASE EVENT DATE: 20170410
